FAERS Safety Report 21101349 (Version 3)
Quarter: 2022Q3

REPORT INFORMATION
  Report Type: Spontaneous
  Country: US (occurrence: US)
  Receive Date: 20220719
  Receipt Date: 20220831
  Transmission Date: 20221026
  Serious: No
  Sender: FDA-Public Use
  Company Number: US-PFIZER INC-202200972183

PATIENT
  Age: 59 Year
  Sex: Male
  Weight: 131.54 kg

DRUGS (1)
  1. PAXLOVID [Suspect]
     Active Substance: NIRMATRELVIR\RITONAVIR
     Indication: COVID-19 treatment
     Dosage: UNK UNK, 2X/DAY
     Dates: start: 20220710, end: 20220714

REACTIONS (1)
  - Symptom recurrence [Recovered/Resolved]

NARRATIVE: CASE EVENT DATE: 20220717
